FAERS Safety Report 21752168 (Version 1)
Quarter: 2022Q4

REPORT INFORMATION
  Report Type: Spontaneous
  Country: FR (occurrence: FR)
  Receive Date: 20221220
  Receipt Date: 20221220
  Transmission Date: 20230112
  Serious: Yes (Other)
  Sender: FDA-Public Use
  Company Number: FR-ALKEM LABORATORIES LIMITED-FR-ALKEM-2022-14187

PATIENT
  Age: 1 Month
  Sex: Female
  Weight: 3.4 kg

DRUGS (5)
  1. SIROLIMUS [Suspect]
     Active Substance: SIROLIMUS
     Indication: Hyperinsulinism
     Dosage: UNK, QD (INITIAL DOSE OF 0.5-1 MG/M2 OF BODY SURFACE AREA PER DAY), SYRUP IN A CONCENTRATION OF 1 MG
     Route: 065
  2. SIROLIMUS [Suspect]
     Active Substance: SIROLIMUS
     Dosage: 2.3 MICROGRAM/SQ. METER (MAXIMAL DOSAGE 2.3 MG/SQ.M. D, TROUGH LEVEL- 3.2-16.5(8.9) MICROGRAM PER LI
     Route: 065
  3. GLUCAGON [Concomitant]
     Active Substance: GLUCAGON
     Indication: Hyperinsulinism
     Dosage: 7.5 MICROGRAM/KILOGRAM HOUR
     Route: 065
  4. DEXTROSE [Concomitant]
     Active Substance: DEXTROSE
     Indication: Hyperinsulinism
     Dosage: 10.6 MILLIGRAM/KILOGRAM MIN
     Route: 042
  5. OCTREOTIDE [Concomitant]
     Active Substance: OCTREOTIDE
     Indication: Hyperinsulinism
     Dosage: 20 MICROGRAM/KILOGRAM
     Route: 065

REACTIONS (6)
  - Pancreatic failure [Unknown]
  - Neutropenia [Unknown]
  - Blood triglycerides increased [Unknown]
  - Gastrointestinal motility disorder [Unknown]
  - Anaemia [Unknown]
  - Drug ineffective for unapproved indication [Unknown]
